FAERS Safety Report 9432249 (Version 4)
Quarter: 2013Q4

REPORT INFORMATION
  Report Type: Report from Study
  Country: TW (occurrence: TW)
  Receive Date: 20130731
  Receipt Date: 20131205
  Transmission Date: 20140711
  Serious: Yes (Hospitalization, Other)
  Sender: FDA-Public Use
  Company Number: PHHY2013TW080718

PATIENT
  Age: 84 Year
  Sex: Female

DRUGS (2)
  1. ACLASTA/ZOLEDRONATE [Suspect]
     Indication: OSTEOPOROSIS
     Dosage: 5 MG, PER 100 ML
     Route: 042
     Dates: start: 20110720
  2. ACLASTA/ZOLEDRONATE [Suspect]
     Dosage: 5 MG, PER 100 ML
     Route: 042
     Dates: start: 20120725

REACTIONS (11)
  - Wound [Recovering/Resolving]
  - Osteomyelitis [Recovering/Resolving]
  - Swelling face [Recovering/Resolving]
  - Erythema [Recovering/Resolving]
  - Feeling hot [Recovering/Resolving]
  - Induration [Recovering/Resolving]
  - Osteonecrosis [Unknown]
  - Osteonecrosis of jaw [Recovered/Resolved]
  - Soft tissue infection [Unknown]
  - Gingivitis [Unknown]
  - Pain [Unknown]
